FAERS Safety Report 9338997 (Version 1)
Quarter: 2013Q2

REPORT INFORMATION
  Report Type: Spontaneous
  Country: US (occurrence: US)
  Receive Date: 20130610
  Receipt Date: 20130610
  Transmission Date: 20140414
  Serious: Yes (Other)
  Sender: FDA-Public Use
  Company Number: US-ELI_LILLY_AND_COMPANY-US201306000391

PATIENT
  Sex: Female

DRUGS (1)
  1. FORTEO [Suspect]
     Dosage: UNK UNK, QD
     Dates: start: 20130503

REACTIONS (10)
  - Basal cell carcinoma [Unknown]
  - Insomnia [Unknown]
  - Arthralgia [Unknown]
  - Paraesthesia [Unknown]
  - Pain [Unknown]
  - Pollakiuria [Unknown]
  - Muscle twitching [Unknown]
  - Vomiting [Unknown]
  - Nausea [Unknown]
  - Muscle spasms [Unknown]
